FAERS Safety Report 9818271 (Version 1)
Quarter: 2013Q4

REPORT INFORMATION
  Report Type: Spontaneous
  Country: US (occurrence: None)
  Receive Date: 20131224
  Receipt Date: 20131224
  Transmission Date: 20140711
  Serious: No
  Sender: FDA-Public Use
  Company Number: PHEH2013US022953

PATIENT
  Sex: Female

DRUGS (1)
  1. GILENYA(FINGOLIMOD) [Suspect]
     Indication: MULTIPLE SCLEROSIS
     Route: 048
     Dates: start: 20121230

REACTIONS (2)
  - Pyrexia [None]
  - Weight increased [None]
